FAERS Safety Report 8620914-6 (Version None)
Quarter: 2012Q3

REPORT INFORMATION
  Report Type: 
  Country: None (occurrence: None)
  Receive Date: 20120824
  Receipt Date: 20120817
  Transmission Date: 20120928
  Serious: No
  Sender: FDA-Public Use
  Company Number: US-009507513-1208USA008382

PATIENT

DRUGS (1)
  1. SAPHRIS [Suspect]
     Dosage: UNK
     Route: 048
     Dates: start: 20120701

REACTIONS (2)
  - ABNORMAL BEHAVIOUR [None]
  - DISSOCIATION [None]
